FAERS Safety Report 11874743 (Version 1)
Quarter: 2015Q4

REPORT INFORMATION
  Report Type: Spontaneous
  Country: US (occurrence: None)
  Receive Date: 20151228
  Receipt Date: 20151228
  Transmission Date: 20160305
  Serious: Yes (Life-Threatening, Disabling)
  Sender: FDA-Public Use
  Company Number: None

PATIENT
  Age: 38 Year
  Sex: Male
  Weight: 98.43 kg

DRUGS (7)
  1. GEODON [Suspect]
     Active Substance: ZIPRASIDONE HYDROCHLORIDE\ZIPRASIDONE MESYLATE
     Indication: ORCHITIS NONINFECTIVE
     Dosage: TAKEN BY MOUTH
     Dates: start: 20151028, end: 20151223
  2. MULTI VITAMIN [Concomitant]
     Active Substance: VITAMINS
  3. GEODON [Suspect]
     Active Substance: ZIPRASIDONE HYDROCHLORIDE\ZIPRASIDONE MESYLATE
     Indication: HAEMORRHOIDS
     Dosage: TAKEN BY MOUTH
     Dates: start: 20151028, end: 20151223
  4. LORAZEPAM. [Concomitant]
     Active Substance: LORAZEPAM
  5. IPRASIDONE [Concomitant]
  6. PHENAZOPYRIDINE. [Suspect]
     Active Substance: PHENAZOPYRIDINE
  7. VITAMIN C [Concomitant]
     Active Substance: ASCORBIC ACID

REACTIONS (3)
  - Genital rash [None]
  - Gastrointestinal disorder [None]
  - Orchitis noninfective [None]

NARRATIVE: CASE EVENT DATE: 20151028
